FAERS Safety Report 9123300 (Version 1)
Quarter: 2013Q1

REPORT INFORMATION
  Report Type: Spontaneous
  Country: US (occurrence: US)
  Receive Date: 20130115
  Receipt Date: 20130115
  Transmission Date: 20140127
  Serious: Yes (Other)
  Sender: FDA-Public Use
  Company Number: US-009507513-1301USA002105

PATIENT
  Age: 39 Year
  Sex: Female

DRUGS (10)
  1. MONTELUKAST SODIUM [Suspect]
  2. PROVENTIL [Suspect]
     Indication: ASTHMA
     Dosage: 8 TO 24 PUFFS INHALATION
     Route: 055
  3. METHOTREXATE [Suspect]
  4. FLUTICASONE PROPIONATE [Suspect]
  5. CETIRIZINE HYDROCHLORIDE [Suspect]
  6. OMALIZUMAB [Suspect]
  7. ZILEUTON [Suspect]
  8. SALMETEROL [Suspect]
  9. PREDNISONE [Suspect]
     Route: 048
  10. COMBIVENT [Suspect]
     Dosage: INHALATION
     Route: 055

REACTIONS (2)
  - Drug ineffective [Unknown]
  - Bronchospasm paradoxical [Unknown]
